FAERS Safety Report 9507336 (Version 1)
Quarter: 2013Q3

REPORT INFORMATION
  Report Type: Spontaneous
  Country: BR (occurrence: BR)
  Receive Date: 20130909
  Receipt Date: 20130909
  Transmission Date: 20140515
  Serious: Yes (Other)
  Sender: FDA-Public Use
  Company Number: BR-PFIZER INC-2013255968

PATIENT
  Age: 62 Year
  Sex: Female

DRUGS (1)
  1. FRONTAL [Suspect]
     Indication: NERVOUSNESS
     Dosage: 0.25 MG, 2X/DAY (IN THE MORNING AND AT NIGHT)
     Route: 048

REACTIONS (2)
  - Choking [Unknown]
  - Sluggishness [Not Recovered/Not Resolved]
